FAERS Safety Report 9537520 (Version 2)
Quarter: 2013Q4

REPORT INFORMATION
  Report Type: Report from Study
  Country: US (occurrence: US)
  Receive Date: 20130919
  Receipt Date: 20131017
  Transmission Date: 20140711
  Serious: Yes (Death, Hospitalization, Other)
  Sender: FDA-Public Use
  Company Number: PHEH2013US019537

PATIENT
  Age: 76 Year
  Sex: Female

DRUGS (13)
  1. AFINITOR [Suspect]
     Indication: BREAST CANCER
     Dosage: 10 MG, QD
     Route: 048
     Dates: start: 20130726
  2. AROMASIN [Concomitant]
     Indication: BREAST CANCER
     Dates: start: 20130625
  3. ASA [Concomitant]
     Dosage: 81 MG, PER DAY
     Route: 048
  4. ATENOLOL [Concomitant]
     Dosage: 150 MG, PER DAY
     Route: 048
  5. OLEXA [Concomitant]
     Indication: DEPRESSION
     Dosage: 20 MG, PER DAY
     Route: 048
  6. GLIPIZIDE [Concomitant]
     Indication: DIABETES MELLITUS
     Dosage: 10 MG, PER DAY
     Route: 048
  7. WELLBUTRIN [Concomitant]
     Indication: DEPRESSION
     Dosage: 300 MG, PER DAY
     Route: 048
  8. LISINOPRIL [Concomitant]
     Indication: HYPERTENSION
     Dosage: 5 MG, PER DAY
     Route: 048
  9. LEVOTHYROXINE [Concomitant]
     Indication: THYROXINE DECREASED
     Dosage: 100 MG, PER DAY
  10. OXYCODONE [Concomitant]
     Indication: PAIN
     Dosage: 20 MG, BID
     Route: 048
  11. K-DUR [Concomitant]
     Indication: BLOOD POTASSIUM DECREASED
     Dosage: 20 MEQ, TID
     Route: 048
  12. SIMVASTATIN [Concomitant]
     Indication: BLOOD CHOLESTEROL INCREASED
     Dosage: 20 MG, PER DAY
     Route: 048
  13. THEOPHYLLIN [Concomitant]

REACTIONS (8)
  - Cardio-respiratory arrest [Fatal]
  - Lymphatic system neoplasm [Unknown]
  - Pneumonia [Unknown]
  - Malignant neoplasm progression [Unknown]
  - Metastases to lung [Unknown]
  - Breast cancer [Unknown]
  - Dyspnoea [Unknown]
  - Loss of consciousness [Unknown]
